FAERS Safety Report 5012149-3 (Version None)
Quarter: 2006Q2

REPORT INFORMATION
  Report Type: 
  Country: None (occurrence: None)
  Receive Date: 20060524
  Receipt Date: 20060512
  Transmission Date: 20061013
  Serious: Yes (Other)
  Sender: FDA-Public Use
  Company Number: 2006065026

PATIENT
  Age: 68 Year
  Sex: Male
  Weight: 87.5442 kg

DRUGS (4)
  1. BEXTRA [Suspect]
     Indication: PAIN
     Dosage: 20 MG (20 MG, 1 IN 1 D), ORAL
     Route: 048
     Dates: start: 20040217
  2. PRAVACHOL (PRAVASTAIN SODIUM) [Concomitant]
  3. AMBIEN [Concomitant]
  4. ALL OTHER THERAPEUTIC PRODUCTS (ALL OTHER THERAPEUTIC PRODUCTS) [Concomitant]

REACTIONS (5)
  - ABDOMINAL PAIN UPPER [None]
  - BACK PAIN [None]
  - DERMATITIS ALLERGIC [None]
  - MUSCULOSKELETAL CHEST PAIN [None]
  - STEVENS-JOHNSON SYNDROME [None]
